FAERS Safety Report 7381152-0 (Version None)
Quarter: 2011Q1

REPORT INFORMATION
  Report Type: 
  Country: None (occurrence: None)
  Receive Date: 20110329
  Receipt Date: 20110325
  Transmission Date: 20110831
  Serious: Yes (Hospitalization, Other)
  Sender: FDA-Public Use
  Company Number: US-AMGEN-USASP2011008854

PATIENT
  Age: 77 Year
  Sex: Male
  Weight: 81.361 kg

DRUGS (10)
  1. NPLATE [Suspect]
     Indication: IDIOPATHIC THROMBOCYTOPENIC PURPURA
     Dosage: 587 A?G, QWK
     Dates: start: 20100330, end: 20101216
  2. LANOXIN [Concomitant]
  3. PREDNISONE [Concomitant]
     Indication: IDIOPATHIC THROMBOCYTOPENIC PURPURA
     Dosage: 10 MG, BID
  4. LISINOPRIL AND HYDROCHLOROTHIAZIDE [Concomitant]
  5. LISINOPRIL [Concomitant]
  6. NEXIUM [Concomitant]
  7. COUMADIN [Concomitant]
  8. LOPID [Concomitant]
  9. LOPRESSOR [Concomitant]
  10. COLACE [Concomitant]

REACTIONS (10)
  - ESSENTIAL HYPERTENSION [None]
  - EMBOLISM ARTERIAL [None]
  - ATRIAL FIBRILLATION [None]
  - THROMBOSIS [None]
  - MARROW HYPERPLASIA [None]
  - INTRAVENTRICULAR HAEMORRHAGE [None]
  - CEREBROVASCULAR ACCIDENT [None]
  - CEREBRAL ATROPHY [None]
  - SUBDURAL HAEMATOMA [None]
  - PLATELET COUNT DECREASED [None]
